FAERS Safety Report 7228009-3 (Version None)
Quarter: 2011Q1

REPORT INFORMATION
  Report Type: 
  Country: None (occurrence: None)
  Receive Date: 20110114
  Receipt Date: 20110111
  Transmission Date: 20110831
  Serious: Yes (Other)
  Sender: FDA-Public Use
  Company Number: US-ALEXION-A201001527

PATIENT
  Sex: Male

DRUGS (5)
  1. PREDNISONE [Concomitant]
     Dosage: 20 MG, QD
     Route: 048
     Dates: start: 20101206
  2. SOLIRIS [Suspect]
     Indication: PAROXYSMAL NOCTURNAL HAEMOGLOBINURIA
     Dosage: UNK
     Route: 042
  3. ZOLOFT [Concomitant]
     Dosage: 10 MG, QD
  4. FOLIC ACID [Concomitant]
     Dosage: 1 MG, QD
     Route: 048
  5. XANAX [Concomitant]
     Dosage: 1 MG, TID
     Route: 048

REACTIONS (2)
  - FURUNCLE [None]
  - STAPHYLOCOCCAL INFECTION [None]
